FAERS Safety Report 5366480-2 (Version None)
Quarter: 2007Q2

REPORT INFORMATION
  Report Type: 
  Country: None (occurrence: None)
  Receive Date: 20070622
  Receipt Date: 20070615
  Transmission Date: 20071010
  Serious: Yes (Other)
  Sender: FDA-Public Use
  Company Number: PHEH2007US05868

PATIENT
  Age: 65 Year
  Sex: Female

DRUGS (1)
  1. ZELNORM [Suspect]
     Indication: PROPHYLAXIS
     Dosage: UNK, BID
     Route: 048
     Dates: start: 20060101, end: 20070413

REACTIONS (1)
  - GASTROINTESTINAL DISORDER [None]
